FAERS Safety Report 5205871-7 (Version None)
Quarter: 2006Q4

REPORT INFORMATION
  Report Type: 
  Country: None (occurrence: None)
  Receive Date: 20061027
  Receipt Date: 20060718
  Transmission Date: 20070319
  Serious: Yes (Hospitalization)
  Sender: FDA-Public Use
  Company Number: 012324

PATIENT
  Age: 68 Year
  Sex: Female

DRUGS (3)
  1. PRIALT [Suspect]
     Indication: ARACHNOIDITIS
     Dosage: SEE IMAGE
     Route: 037
     Dates: start: 20060101, end: 20060601
  2. PRIALT [Suspect]
     Indication: ARACHNOIDITIS
     Dosage: SEE IMAGE
     Route: 037
     Dates: start: 20060601, end: 20060626
  3. HYDROCODONE BITARTRATE [Concomitant]

REACTIONS (2)
  - CONFUSIONAL STATE [None]
  - DELIRIUM [None]
